FAERS Safety Report 18253205 (Version 1)
Quarter: 2020Q3

REPORT INFORMATION
  Report Type: Report from Study
  Country: US (occurrence: US)
  Receive Date: 20200910
  Receipt Date: 20200910
  Transmission Date: 20201103
  Serious: Yes (Death, Other)
  Sender: FDA-Public Use
  Company Number: US-CHIESI-2020CHF04234

PATIENT
  Sex: Female
  Weight: 67 kg

DRUGS (6)
  1. CARVEDILOL. [Concomitant]
     Active Substance: CARVEDILOL
     Indication: PRODUCT USED FOR UNKNOWN INDICATION
     Dosage: UNK
     Route: 065
  2. SPIRONOLACTONE. [Concomitant]
     Active Substance: SPIRONOLACTONE
     Indication: PRODUCT USED FOR UNKNOWN INDICATION
     Dosage: UNK
     Route: 065
  3. CURCUMIN [Concomitant]
     Active Substance: CURCUMIN
     Indication: PRODUCT USED FOR UNKNOWN INDICATION
     Dosage: UNK
     Route: 065
  4. DEFERIPRONE [Suspect]
     Active Substance: DEFERIPRONE
     Indication: PLASMA CELL MYELOMA
     Dosage: 22 MILLIGRAM/KILOGRAM, TID
     Route: 048
     Dates: start: 20200604, end: 20200806
  5. ACYCLOVIR [ACICLOVIR] [Concomitant]
     Active Substance: ACYCLOVIR
     Indication: PRODUCT USED FOR UNKNOWN INDICATION
     Dosage: UNK
     Route: 065
  6. DEFERIPRONE [Suspect]
     Active Substance: DEFERIPRONE
     Indication: HAEMOCHROMATOSIS

REACTIONS (3)
  - Plasma cell myeloma [Fatal]
  - Cardiac failure congestive [Fatal]
  - Renal disorder [Fatal]
